FAERS Safety Report 6835152-7 (Version None)
Quarter: 2010Q3

REPORT INFORMATION
  Report Type: 
  Country: None (occurrence: None)
  Receive Date: 20100713
  Receipt Date: 20100702
  Transmission Date: 20110219
  Serious: No
  Sender: FDA-Public Use
  Company Number: US-BIOGENIDEC-2010BI023015

PATIENT
  Age: 64 Year
  Sex: Male

DRUGS (1)
  1. TYSABRI [Suspect]
     Indication: MULTIPLE SCLEROSIS
     Route: 042
     Dates: start: 20090828

REACTIONS (6)
  - ABNORMAL BEHAVIOUR [None]
  - COUGH [None]
  - DYSPHAGIA [None]
  - FATIGUE [None]
  - HYPERSENSITIVITY [None]
  - MEMORY IMPAIRMENT [None]
